FAERS Safety Report 16411326 (Version 15)
Quarter: 2022Q1

REPORT INFORMATION
  Report Type: Spontaneous
  Country: US (occurrence: US)
  Receive Date: 20190610
  Receipt Date: 20220218
  Transmission Date: 20220424
  Serious: Yes (Other)
  Sender: FDA-Public Use
  Company Number: US-PFIZER INC-2019237301

PATIENT
  Age: 50 Year
  Sex: Female
  Weight: 72.12 kg

DRUGS (6)
  1. EFFEXOR XR [Suspect]
     Active Substance: VENLAFAXINE HYDROCHLORIDE
     Indication: Major depression
     Dosage: 150 MG, 1X/DAY
     Route: 048
     Dates: start: 1996
  2. EFFEXOR XR [Suspect]
     Active Substance: VENLAFAXINE HYDROCHLORIDE
     Indication: Attention deficit hyperactivity disorder
     Dosage: 75 MG, DAILY
     Route: 048
  3. EFFEXOR XR [Suspect]
     Active Substance: VENLAFAXINE HYDROCHLORIDE
     Dosage: 225 MG, DAILY (150 AND 75 TAKE ONE OF EACH EVERY DAY; STRENGTH : 75 MG AND 150 MG)
     Route: 048
     Dates: start: 2006
  4. EFFEXOR XR [Suspect]
     Active Substance: VENLAFAXINE HYDROCHLORIDE
     Dosage: 225 MG
     Dates: start: 2016
  5. EFFEXOR XR [Suspect]
     Active Substance: VENLAFAXINE HYDROCHLORIDE
     Dosage: 225 MG, 1X/DAY (TAKES 2 CAPSULES, TOTAL OF 225MG A DAY; ONE 150XR AND ONE 75XR)
  6. METHYLPHENIDATE [Concomitant]
     Active Substance: METHYLPHENIDATE
     Indication: Attention deficit hyperactivity disorder
     Dosage: UNK, 1X/DAY

REACTIONS (11)
  - Suicidal ideation [Recovered/Resolved]
  - Drug dependence [Unknown]
  - Cataract [Unknown]
  - Thinking abnormal [Unknown]
  - Feeling abnormal [Unknown]
  - Dizziness [Unknown]
  - Nausea [Unknown]
  - Cognitive disorder [Unknown]
  - Hypoacusis [Unknown]
  - Astigmatism [Unknown]
  - Depression [Not Recovered/Not Resolved]

NARRATIVE: CASE EVENT DATE: 19960101
